FAERS Safety Report 16670168 (Version 1)
Quarter: 2019Q3

REPORT INFORMATION
  Report Type: Spontaneous
  Country: FR (occurrence: FR)
  Receive Date: 20190805
  Receipt Date: 20190805
  Transmission Date: 20191004
  Serious: Yes (Hospitalization, Other)
  Sender: FDA-Public Use
  Company Number: FR-PFM-2019-09649

PATIENT

DRUGS (2)
  1. NAVELBINE [Suspect]
     Active Substance: VINORELBINE TARTRATE
     Indication: LUNG ADENOCARCINOMA
     Dosage: 108 MG EVERY 28 DAYS
     Route: 042
     Dates: start: 20190513
  2. CISPLATINE [Suspect]
     Active Substance: CISPLATIN
     Indication: LUNG ADENOCARCINOMA
     Dosage: 183 MG EVERY 28 DAYS
     Route: 042
     Dates: start: 20190513, end: 20190611

REACTIONS (3)
  - Tinnitus [Not Recovered/Not Resolved]
  - Mixed deafness [Not Recovered/Not Resolved]
  - Agranulocytosis [Recovered/Resolved]

NARRATIVE: CASE EVENT DATE: 201905
